FAERS Safety Report 8525993-2 (Version None)
Quarter: 2012Q3

REPORT INFORMATION
  Report Type: 
  Country: None (occurrence: None)
  Receive Date: 20120720
  Receipt Date: 20120713
  Transmission Date: 20120928
  Serious: Yes (Other)
  Sender: FDA-Public Use
  Company Number: CHPA2012GB015302

PATIENT
  Age: 62 Year
  Sex: Female
  Weight: 82 kg

DRUGS (3)
  1. METFORMIN HCL [Concomitant]
     Dosage: UNK, UNK
     Dates: start: 20120312
  2. LEVOTHYROXINE SODIUM [Concomitant]
     Dosage: UNK, UNK
     Dates: start: 20120312
  3. FERROUS SULFATE TAB [Suspect]
     Dosage: UNK, UNK
     Dates: start: 20120629

REACTIONS (4)
  - ABDOMINAL PAIN UPPER [None]
  - CONSTIPATION [None]
  - DIARRHOEA [None]
  - HYPERHIDROSIS [None]
